FAERS Safety Report 9194092 (Version 1)
Quarter: 2013Q1

REPORT INFORMATION
  Report Type: Spontaneous
  Country: KR (occurrence: KR)
  Receive Date: 20130327
  Receipt Date: 20130327
  Transmission Date: 20140127
  Serious: Yes (Hospitalization, Other)
  Sender: FDA-Public Use
  Company Number: KR-ELI_LILLY_AND_COMPANY-KR201303008317

PATIENT
  Age: 54 Year
  Sex: Female

DRUGS (2)
  1. RALOXIFENE HYDROCHLORIDE [Suspect]
     Indication: OSTEOPOROSIS
     Dosage: 60 MG, QD
     Route: 048
     Dates: start: 2010
  2. CALCIUM +VIT D [Concomitant]

REACTIONS (3)
  - Pneumothorax [Unknown]
  - Breast cancer [Unknown]
  - Pulmonary embolism [Unknown]
